FAERS Safety Report 17959119 (Version 1)
Quarter: 2020Q2

REPORT INFORMATION
  Report Type: Report from Study
  Country: EG (occurrence: EG)
  Receive Date: 20200629
  Receipt Date: 20200629
  Transmission Date: 20200714
  Serious: Yes (Other)
  Sender: FDA-Public Use
  Company Number: NVSC2020EG180153

PATIENT
  Age: 50 Year
  Sex: Male

DRUGS (2)
  1. GLIVEC [Suspect]
     Active Substance: IMATINIB MESYLATE
     Indication: CHRONIC MYELOID LEUKAEMIA
     Dosage: 400 MG, QD (STARTED MORE THAN 2 YEARS AGO)
     Route: 065
  2. TASIGNA [Suspect]
     Active Substance: NILOTINIB
     Indication: CHRONIC MYELOID LEUKAEMIA
     Dosage: 800 MG, QD (STARTED 3 OR 4 MONTHS AGO)
     Route: 048

REACTIONS (9)
  - Leukocytosis [Recovering/Resolving]
  - Visual impairment [Recovered/Resolved]
  - Drug hypersensitivity [Recovering/Resolving]
  - Coronary artery disease [Recovering/Resolving]
  - Pain [Recovered/Resolved]
  - Eye haemorrhage [Recovered/Resolved]
  - Pruritus [Recovering/Resolving]
  - Rash [Recovering/Resolving]
  - Fatigue [Recovered/Resolved]

NARRATIVE: CASE EVENT DATE: 201902
